FAERS Safety Report 9148809 (Version 1)
Quarter: 2013Q1

REPORT INFORMATION
  Report Type: Spontaneous
  Country: GB (occurrence: None)
  Receive Date: 20130220
  Receipt Date: 20130220
  Transmission Date: 20140127
  Serious: Yes (Death, Other)
  Sender: FDA-Public Use
  Company Number: 2013P1002277

PATIENT
  Sex: 0

DRUGS (4)
  1. MORPHINE [Suspect]
  2. DIAZEPAM [Suspect]
  3. METHADONE [Suspect]
  4. KETAMINE [Suspect]

REACTIONS (4)
  - Toxicity to various agents [None]
  - Endocarditis [None]
  - Drug abuse [None]
  - Cerebral infarction [None]
